FAERS Safety Report 12614262 (Version 2)
Quarter: 2016Q3

REPORT INFORMATION
  Report Type: Spontaneous
  Country: FR (occurrence: FR)
  Receive Date: 20160802
  Receipt Date: 20160915
  Transmission Date: 20161109
  Serious: Yes (Hospitalization)
  Sender: FDA-Public Use
  Company Number: FR-JNJFOC-20160726903

PATIENT
  Age: 77 Year
  Sex: Male

DRUGS (4)
  1. MIOREL [Suspect]
     Active Substance: THIOCOLCHICOSIDE
     Indication: SCIATICA
     Route: 048
     Dates: start: 20160615, end: 20160628
  2. BIPROFENID [Suspect]
     Active Substance: KETOPROFEN
     Indication: SCIATICA
     Route: 048
     Dates: start: 20160615, end: 20160628
  3. ESOMEPRAZOLE [Suspect]
     Active Substance: ESOMEPRAZOLE
     Indication: SCIATICA
     Route: 048
     Dates: start: 20160615, end: 20160628
  4. IXPRIM [Suspect]
     Active Substance: ACETAMINOPHEN\TRAMADOL HYDROCHLORIDE
     Indication: SCIATICA
     Route: 048
     Dates: start: 20160628, end: 20160705

REACTIONS (3)
  - Pruritus [Recovering/Resolving]
  - Rash vesicular [Recovering/Resolving]
  - Eosinophilia [Recovering/Resolving]

NARRATIVE: CASE EVENT DATE: 20160702
